FAERS Safety Report 20178125 (Version 1)
Quarter: 2021Q4

REPORT INFORMATION
  Report Type: Spontaneous
  Country: US (occurrence: US)
  Receive Date: 20211213
  Receipt Date: 20211213
  Transmission Date: 20220303
  Serious: No
  Sender: FDA-Public Use
  Company Number: US-SANOFI-00888210

PATIENT

DRUGS (2)
  1. TOUJEO [Suspect]
     Active Substance: INSULIN GLARGINE
     Dosage: SMALL DOSE OF TOUJEO IN THE MORNING AND A LARGER AMOUNT OF TOUJEO AT NIGHT, Q12H
  2. LEVEMIR [Concomitant]
     Active Substance: INSULIN DETEMIR
     Dosage: UNK UNK, BID

REACTIONS (1)
  - Inappropriate schedule of product administration [Unknown]
